FAERS Safety Report 9812853 (Version 1)
Quarter: 2014Q1

REPORT INFORMATION
  Report Type: Spontaneous
  Country: US (occurrence: None)
  Receive Date: 20140109
  Receipt Date: 20140109
  Transmission Date: 20141002
  Serious: Yes (Other)
  Sender: FDA-Public Use
  Company Number: None

PATIENT
  Age: 19 Year
  Sex: Female
  Weight: 58.06 kg

DRUGS (1)
  1. LEVORA [Suspect]
     Indication: CONTRACEPTION
     Dosage: 1 PILL
     Route: 048
     Dates: start: 20131101, end: 20140108

REACTIONS (4)
  - Malaise [None]
  - Nausea [None]
  - Feeling abnormal [None]
  - Depression [None]
